FAERS Safety Report 4652665-7 (Version None)
Quarter: 2005Q2

REPORT INFORMATION
  Report Type: 
  Country: None (occurrence: None)
  Receive Date: 20050502
  Receipt Date: 20050418
  Transmission Date: 20051028
  Serious: Yes (Hospitalization)
  Sender: FDA-Public Use
  Company Number: 2005062804

PATIENT
  Age: 45 Year
  Sex: Male

DRUGS (4)
  1. FLUCONAZOLE [Suspect]
     Indication: VIRAL INFECTION
     Dosage: ORAL
     Route: 048
     Dates: end: 20050303
  2. RITONAVIR (RITONAVIR) [Suspect]
     Indication: HIV INFECTION
     Dosage: ORAL
     Route: 048
     Dates: start: 20030701, end: 20050303
  3. LAMIVUDINE [Suspect]
     Indication: HIV INFECTION
     Dosage: ORAL
     Route: 048
     Dates: start: 19960701, end: 20050303
  4. ENFUVIRTIDE (ENFUVIRTIDE) [Suspect]
     Indication: HIV INFECTION
     Dosage: 2 DOSE FORMS (EVERY DAY)
     Dates: start: 20050222, end: 20050303

REACTIONS (4)
  - C-REACTIVE PROTEIN INCREASED [None]
  - MYCOBACTERIAL INFECTION [None]
  - PANCREATITIS [None]
  - PROTEIN TOTAL ABNORMAL [None]
